FAERS Safety Report 5272513-4 (Version None)
Quarter: 2007Q1

REPORT INFORMATION
  Report Type: 
  Country: None (occurrence: None)
  Receive Date: 20070322
  Receipt Date: 20060807
  Transmission Date: 20070707
  Serious: No
  Sender: FDA-Public Use
  Company Number: US-BRISTOL-MYERS SQUIBB COMPANY-13467840

PATIENT
  Age: 55 Year
  Sex: Female
  Weight: 67 kg

DRUGS (3)
  1. KENALOG [Suspect]
     Indication: NERVE COMPRESSION
     Route: 008
     Dates: start: 20060619
  2. KENALOG [Suspect]
     Indication: EXOSTOSIS
     Route: 008
     Dates: start: 20060619
  3. VITAMINS [Concomitant]

REACTIONS (8)
  - ABNORMAL FAECES [None]
  - DRY EYE [None]
  - DRY SKIN [None]
  - ECCHYMOSIS [None]
  - INFLUENZA LIKE ILLNESS [None]
  - MUSCLE SPASMS [None]
  - SALIVARY HYPERSECRETION [None]
  - SWELLING FACE [None]
